FAERS Safety Report 7647025-0 (Version None)
Quarter: 2011Q3

REPORT INFORMATION
  Report Type: 
  Country: None (occurrence: None)
  Receive Date: 20110801
  Receipt Date: 20110720
  Transmission Date: 20111222
  Serious: Yes (Hospitalization)
  Sender: FDA-Public Use
  Company Number: US-JNJFOC-20101204702

PATIENT
  Sex: Female
  Weight: 59.3 kg

DRUGS (2)
  1. MESALAMINE [Concomitant]
     Route: 048
  2. REMICADE [Suspect]
     Indication: INFLAMMATORY BOWEL DISEASE
     Route: 042
     Dates: start: 20070626

REACTIONS (2)
  - POSTOPERATIVE WOUND INFECTION [None]
  - ANAL STENOSIS [None]
